FAERS Safety Report 17344172 (Version 2)
Quarter: 2020Q1

REPORT INFORMATION
  Report Type: Report from Study
  Country: CA (occurrence: CA)
  Receive Date: 20200129
  Receipt Date: 20200227
  Transmission Date: 20200409
  Serious: Yes (Hospitalization, Other)
  Sender: FDA-Public Use
  Company Number: CA-JNJFOC-20191137632

PATIENT
  Age: 55 Year
  Sex: Male
  Weight: 106.6 kg

DRUGS (1)
  1. STELARA [Suspect]
     Active Substance: USTEKINUMAB
     Indication: CROHN^S DISEASE
     Route: 058
     Dates: start: 20150925

REACTIONS (3)
  - Nasal obstruction [Recovered/Resolved]
  - Hordeolum [Recovering/Resolving]
  - Sleep apnoea syndrome [Unknown]

NARRATIVE: CASE EVENT DATE: 202002
